FAERS Safety Report 16849059 (Version 2)
Quarter: 2019Q4

REPORT INFORMATION
  Report Type: Spontaneous
  Country: US (occurrence: US)
  Receive Date: 20190925
  Receipt Date: 20191110
  Transmission Date: 20200122
  Serious: Yes (Other)
  Sender: FDA-Public Use
  Company Number: US-DRREDDYS-USA/USA/19/0114458

PATIENT
  Age: 23 Year
  Sex: Male

DRUGS (13)
  1. ABATACEPT [Suspect]
     Active Substance: ABATACEPT
     Indication: IMMUNOSUPPRESSANT DRUG THERAPY
     Dates: start: 20121102
  2. PREDNISONE. [Suspect]
     Active Substance: PREDNISONE
     Dates: start: 201209, end: 201210
  3. PREDNISONE. [Suspect]
     Active Substance: PREDNISONE
     Indication: GLOMERULONEPHRITIS MINIMAL LESION
     Dates: start: 2015
  4. PREDNISONE. [Suspect]
     Active Substance: PREDNISONE
     Dates: start: 2011, end: 201202
  5. ABATACEPT [Suspect]
     Active Substance: ABATACEPT
     Indication: GLOMERULONEPHRITIS MINIMAL LESION
     Dates: start: 20121116
  6. PREDNISONE. [Suspect]
     Active Substance: PREDNISONE
     Indication: IMMUNOSUPPRESSANT DRUG THERAPY
     Dates: start: 201210, end: 2015
  7. PREDNISONE. [Suspect]
     Active Substance: PREDNISONE
     Dates: start: 2012
  8. PREDNISONE. [Suspect]
     Active Substance: PREDNISONE
     Dates: start: 201208, end: 201209
  9. ABATACEPT [Suspect]
     Active Substance: ABATACEPT
     Dates: start: 20121128
  10. TACROLIMUS. [Suspect]
     Active Substance: TACROLIMUS
     Indication: GLOMERULONEPHRITIS MINIMAL LESION
     Dates: start: 2011, end: 2015
  11. TACROLIMUS. [Suspect]
     Active Substance: TACROLIMUS
     Indication: IMMUNOSUPPRESSANT DRUG THERAPY
     Dates: start: 2015
  12. PREDNISONE. [Suspect]
     Active Substance: PREDNISONE
     Dates: start: 2015, end: 2015
  13. PREDNISONE. [Suspect]
     Active Substance: PREDNISONE
     Dates: start: 201202, end: 2012

REACTIONS (1)
  - Upper respiratory tract infection [Unknown]
